FAERS Safety Report 11394181 (Version 1)
Quarter: 2015Q3

REPORT INFORMATION
  Report Type: Spontaneous
  Country: US (occurrence: None)
  Receive Date: 20150817
  Receipt Date: 20150817
  Transmission Date: 20151125
  Serious: Yes (Hospitalization)
  Sender: FDA-Public Use
  Company Number: None

PATIENT
  Age: 43 Year
  Sex: Female
  Weight: 72.58 kg

DRUGS (12)
  1. VERAPAMIL [Concomitant]
     Active Substance: VERAPAMIL HYDROCHLORIDE
  2. RAGLAN [Concomitant]
  3. LYRICA [Concomitant]
     Active Substance: PREGABALIN
  4. HEMP OIL [Concomitant]
     Active Substance: CANNABIS SATIVA SEED OIL
  5. DULCE LAX LAXATIVE [Concomitant]
  6. KETOROLAC [Concomitant]
     Active Substance: KETOROLAC\KETOROLAC TROMETHAMINE
  7. MAGNESIUM MELEATE [Concomitant]
  8. DILAUDID [Concomitant]
     Active Substance: HYDROMORPHONE HYDROCHLORIDE
  9. COQ10 [Concomitant]
     Active Substance: UBIDECARENONE
  10. EXALGO [Suspect]
     Active Substance: HYDROMORPHONE HYDROCHLORIDE
     Indication: COMPLEX REGIONAL PAIN SYNDROME
     Dosage: 2 PILLS
     Route: 048
  11. PROTONIX [Concomitant]
     Active Substance: PANTOPRAZOLE SODIUM
  12. ZYRTEC [Concomitant]
     Active Substance: CETIRIZINE HYDROCHLORIDE

REACTIONS (9)
  - Myalgia [None]
  - Fatigue [None]
  - Medication error [None]
  - Drug dose omission [None]
  - Abdominal pain upper [None]
  - Escherichia infection [None]
  - Shigella infection [None]
  - Back pain [None]
  - Hypopnoea [None]

NARRATIVE: CASE EVENT DATE: 20150816
